FAERS Safety Report 21086816 (Version 1)
Quarter: 2022Q3

REPORT INFORMATION
  Report Type: Spontaneous
  Country: None (occurrence: US)
  Receive Date: 20220715
  Receipt Date: 20220715
  Transmission Date: 20221027
  Serious: No
  Sender: FDA-Public Use
  Company Number: US-Bio Products Laboratory Ltd-2130904

PATIENT
  Age: 24 Year
  Sex: Male
  Weight: 73.936 kg

DRUGS (1)
  1. COAGADEX [Suspect]
     Active Substance: COAGULATION FACTOR X HUMAN
     Indication: Factor X deficiency
     Route: 042
     Dates: start: 20220405

REACTIONS (2)
  - Neck pain [Recovered/Resolved]
  - Swelling [Recovered/Resolved]
